FAERS Safety Report 7151578-9 (Version None)
Quarter: 2010Q4

REPORT INFORMATION
  Report Type: 
  Country: None (occurrence: None)
  Receive Date: 20101210
  Receipt Date: 20101208
  Transmission Date: 20110411
  Serious: Yes (Death, Hospitalization, Other)
  Sender: FDA-Public Use
  Company Number: BR-PFIZER INC-2010126798

PATIENT
  Age: 66 Year
  Sex: Male
  Weight: 85.3 kg

DRUGS (25)
  1. IBUPROFEN [Suspect]
     Indication: OSTEOARTHRITIS
     Dosage: LOW DOSE, 3X/DAY
     Route: 048
     Dates: start: 20091222, end: 20100926
  2. NAPROXEN [Suspect]
     Indication: OSTEOARTHRITIS
     Dosage: LOW DOSE, 3X/DAY
     Route: 048
     Dates: start: 20091222, end: 20100926
  3. BLINDED *NO SUBJECT DRUG [Suspect]
     Indication: OSTEOARTHRITIS
     Dosage: LOW DOSE, 3X/DAY
     Route: 048
     Dates: start: 20091222, end: 20100926
  4. PLACEBO [Suspect]
     Indication: OSTEOARTHRITIS
     Dosage: LOW DOSE, 3X/DAY
     Route: 048
     Dates: start: 20091222, end: 20100926
  5. CELECOXIB [Suspect]
     Indication: OSTEOARTHRITIS
     Dosage: LOW DOSE, 3X/DAY
     Route: 048
     Dates: start: 20091222, end: 20100926
  6. IBUPROFEN [Suspect]
     Dosage: LOW DOSE, 3X/DAY
     Route: 048
     Dates: start: 20091222, end: 20100926
  7. NAPROXEN [Suspect]
     Dosage: LOW DOSE, 3X/DAY
     Route: 048
     Dates: start: 20091222, end: 20100926
  8. IBUPROFEN [Suspect]
     Indication: RHEUMATOID ARTHRITIS
  9. NAPROXEN [Suspect]
     Indication: RHEUMATOID ARTHRITIS
  10. BLINDED *NO SUBJECT DRUG [Suspect]
     Indication: RHEUMATOID ARTHRITIS
  11. PLACEBO [Suspect]
     Indication: RHEUMATOID ARTHRITIS
  12. CELECOXIB [Suspect]
     Indication: RHEUMATOID ARTHRITIS
  13. IBUPROFEN [Suspect]
  14. NAPROXEN [Suspect]
  15. NEXIUM [Concomitant]
     Indication: GASTRITIS PROPHYLAXIS
     Dosage: 20 MG, DAILY
     Route: 048
     Dates: start: 20091222, end: 20100926
  16. METHOTREXATE [Concomitant]
     Indication: RHEUMATOID ARTHRITIS
     Dosage: 15 MG, WEEKLY
     Route: 048
     Dates: start: 20090417
  17. FOLATE [Concomitant]
     Indication: RHEUMATOID ARTHRITIS
     Dosage: 10 MG, WEEKLY
     Route: 048
     Dates: start: 20090417
  18. ACETYLSALICYLIC ACID [Concomitant]
     Indication: CARDIOVASCULAR DISORDER
     Dosage: 100 MG, 1X/DAY
     Route: 048
     Dates: start: 19971001
  19. ENALAPRIL [Concomitant]
     Indication: HYPERTENSION
     Dosage: 20 MG, 1X/DAY
     Route: 048
     Dates: start: 20100801
  20. CALCIUM CARBONATE [Concomitant]
     Indication: OSTEOPOROSIS PROPHYLAXIS
     Dosage: 500 MG, 2X/DAY
     Route: 048
     Dates: start: 20090417
  21. VITAMIN D [Concomitant]
     Indication: OSTEOPOROSIS PROPHYLAXIS
     Dosage: 400 IU, 2X/DAY
     Route: 048
     Dates: start: 20090417
  22. PREDNISONE [Concomitant]
     Indication: RHEUMATOID ARTHRITIS
     Dosage: 7.5 MG, 1X/DAY
     Route: 048
     Dates: start: 20090901
  23. CARVEDILOL [Concomitant]
     Indication: MYOCARDIAL INFARCTION
     Dosage: 3.125 MG, 2X/DAY
     Route: 048
     Dates: start: 20090801
  24. FUROSEMIDE [Concomitant]
     Indication: HYPERTENSION
     Dosage: 40 MG, 1X/DAY
     Route: 048
     Dates: start: 20090801
  25. SIMVASTATIN [Concomitant]
     Indication: DYSLIPIDAEMIA
     Dosage: 20 MG, 1X/DAY
     Route: 048
     Dates: start: 20090801

REACTIONS (2)
  - CEREBROVASCULAR ACCIDENT [None]
  - RESPIRATORY ARREST [None]
